FAERS Safety Report 7085392-X (Version None)
Quarter: 2010Q4

REPORT INFORMATION
  Report Type: 
  Country: None (occurrence: None)
  Receive Date: 20101105
  Receipt Date: 20101103
  Transmission Date: 20110411
  Serious: Yes (Hospitalization)
  Sender: FDA-Public Use
  Company Number: IT-PFIZER INC-2010135210

PATIENT
  Age: 85 Year
  Sex: Female

DRUGS (6)
  1. CELEBREX [Suspect]
     Indication: ARTHRITIS
     Dosage: 200 MG, 1X/DAY
     Route: 048
     Dates: start: 20100712, end: 20100714
  2. DELECIT [Concomitant]
     Dosage: UNK
  3. SIRIO [Concomitant]
     Dosage: UNK
  4. LANOXIN [Concomitant]
     Dosage: UNK
  5. LACIPIL [Concomitant]
     Dosage: UNK
  6. NORVASC [Concomitant]
     Dosage: 5 MG, UNK

REACTIONS (4)
  - ABDOMINAL PAIN UPPER [None]
  - HAEMATEMESIS [None]
  - MELAENA [None]
  - SMALL INTESTINAL ULCER HAEMORRHAGE [None]
